FAERS Safety Report 18571448 (Version 3)
Quarter: 2020Q4

REPORT INFORMATION
  Report Type: Spontaneous
  Country: CN (occurrence: CN)
  Receive Date: 20201202
  Receipt Date: 20201216
  Transmission Date: 20210114
  Serious: Yes (Hospitalization, Other)
  Sender: FDA-Public Use
  Company Number: CN-ASTRAZENECA-2020SF58530

PATIENT
  Age: 64 Year
  Sex: Female

DRUGS (1)
  1. IRESSA [Suspect]
     Active Substance: GEFITINIB
     Indication: NON-SMALL CELL LUNG CANCER
     Route: 048

REACTIONS (5)
  - Drug resistance [Unknown]
  - Drug ineffective [Unknown]
  - Pleural effusion [Not Recovered/Not Resolved]
  - Metastasis [Unknown]
  - Pulmonary oedema [Not Recovered/Not Resolved]
